FAERS Safety Report 15508140 (Version 1)
Quarter: 2018Q4

REPORT INFORMATION
  Report Type: Other
  Country: CA (occurrence: CA)
  Receive Date: 20181016
  Receipt Date: 20181016
  Transmission Date: 20190205
  Serious: Yes (Other)
  Sender: FDA-Public Use
  Company Number: CA-DUCHESNAY INC.-2056216

PATIENT
  Sex: Female

DRUGS (5)
  1. FOLIC ACID. [Suspect]
     Active Substance: FOLIC ACID
     Route: 064
  2. PRIVIGEN [Suspect]
     Active Substance: HUMAN IMMUNOGLOBULIN G
     Route: 064
  3. DIFLUCAN [Suspect]
     Active Substance: FLUCONAZOLE
     Route: 064
  4. DICLEGIS [Suspect]
     Active Substance: DOXYLAMINE SUCCINATE\PYRIDOXINE HYDROCHLORIDE
     Indication: PRODUCT USED FOR UNKNOWN INDICATION
     Route: 064
  5. GRAVOL [Suspect]
     Active Substance: DIMENHYDRINATE
     Route: 064

REACTIONS (2)
  - Foetal growth restriction [Unknown]
  - Premature baby [Unknown]
